FAERS Safety Report 17882713 (Version 2)
Quarter: 2020Q2

REPORT INFORMATION
  Report Type: Spontaneous
  Country: US (occurrence: US)
  Receive Date: 20200610
  Receipt Date: 20200612
  Transmission Date: 20200714
  Serious: No
  Sender: FDA-Public Use
  Company Number: NVSC2020US158201

PATIENT
  Sex: Female

DRUGS (1)
  1. XIIDRA [Suspect]
     Active Substance: LIFITEGRAST
     Indication: PRODUCT USED FOR UNKNOWN INDICATION
     Dosage: UNK
     Route: 065
     Dates: end: 20200405

REACTIONS (12)
  - Bronchospasm [Recovering/Resolving]
  - Dyspnoea [Recovering/Resolving]
  - Taste disorder [Unknown]
  - Nasal congestion [Recovering/Resolving]
  - Piriformis syndrome [Unknown]
  - Vision blurred [Recovering/Resolving]
  - Genito-pelvic pain/penetration disorder [Unknown]
  - Respiratory tract congestion [Recovering/Resolving]
  - Vulvovaginal pain [Recovering/Resolving]
  - Rectal spasm [Not Recovered/Not Resolved]
  - Upper-airway cough syndrome [Recovering/Resolving]
  - Dry eye [Unknown]
